FAERS Safety Report 9563436 (Version 1)
Quarter: 2013Q3

REPORT INFORMATION
  Report Type: Spontaneous
  Country: US (occurrence: None)
  Receive Date: 20130926
  Receipt Date: 20130926
  Transmission Date: 20140515
  Serious: Yes (Hospitalization)
  Sender: FDA-Public Use
  Company Number: 2103MPI00546

PATIENT
  Sex: 0

DRUGS (6)
  1. BRENTUXIMAB VEDOTIN [Suspect]
     Indication: HODGKIN^S DISEASE
     Route: 042
  2. ETOPOSIDE [Suspect]
     Indication: HODGKIN^S DISEASE
     Route: 042
     Dates: end: 20130906
  3. CYCLOPHOSPHAMIDE [Suspect]
     Indication: HODGKIN^S DISEASE
     Route: 042
  4. DOXORUBICIN [Suspect]
     Indication: HODGKIN^S DISEASE
     Route: 042
  5. PROCARBAZINE [Suspect]
     Indication: HODGKIN^S DISEASE
  6. PREDNISONE [Suspect]
     Indication: HODGKIN^S DISEASE

REACTIONS (1)
  - Gastroenteritis [None]
